FAERS Safety Report 14766759 (Version 1)
Quarter: 2018Q2

REPORT INFORMATION
  Report Type: Spontaneous
  Country: RO (occurrence: RO)
  Receive Date: 20180417
  Receipt Date: 20180417
  Transmission Date: 20180711
  Serious: Yes (Other)
  Sender: FDA-Public Use
  Company Number: RO-ALEMBIC PHARMACUETICALS LIMITED-2018SCAL000257

PATIENT

DRUGS (1)
  1. LEFLUNOMIDE. [Suspect]
     Active Substance: LEFLUNOMIDE
     Indication: RHEUMATOID ARTHRITIS
     Dosage: UNK

REACTIONS (4)
  - Maternal exposure during pregnancy [Unknown]
  - Abortion spontaneous [Unknown]
  - Abortion induced [Unknown]
  - Premature delivery [Unknown]
